FAERS Safety Report 9775612 (Version 2)
Quarter: 2014Q1

REPORT INFORMATION
  Report Type: Report from Study
  Country: CA (occurrence: CA)
  Receive Date: 20131220
  Receipt Date: 20140117
  Transmission Date: 20141002
  Serious: Yes (Hospitalization)
  Sender: FDA-Public Use
  Company Number: CA-ABBVIE-13P-028-1179449-00

PATIENT
  Age: 73 Year
  Sex: Female
  Weight: 55.84 kg

DRUGS (9)
  1. HUMIRA [Suspect]
     Indication: RHEUMATOID ARTHRITIS
     Route: 058
     Dates: start: 20131127
  2. ARTHROTEC [Concomitant]
     Indication: RHEUMATOID ARTHRITIS
     Dosage: 50/200
  3. LETROZOLE [Concomitant]
     Indication: BREAST CANCER
  4. ADALAT XL [Concomitant]
     Indication: HYPERTENSION
  5. INDAPAMIDE [Concomitant]
     Indication: HYPERTENSION
  6. RANITIDINE [Concomitant]
     Indication: DYSPEPSIA
  7. POTASSIUM CHLORIDE [Concomitant]
     Indication: BLOOD POTASSIUM DECREASED
  8. METFORMIN [Concomitant]
     Indication: DIABETES MELLITUS
     Dates: start: 20131126
  9. DEPO MEDROL [Concomitant]
     Indication: RHEUMATOID ARTHRITIS

REACTIONS (6)
  - Asthenia [Unknown]
  - Asthenia [Unknown]
  - Fall [Recovered/Resolved]
  - Back injury [Recovered/Resolved]
  - Urinary tract infection [Recovered/Resolved]
  - Rheumatoid arthritis [Unknown]
